FAERS Safety Report 6464359-6 (Version None)
Quarter: 2009Q4

REPORT INFORMATION
  Report Type: 
  Country: None (occurrence: None)
  Receive Date: 20091201
  Receipt Date: 20091118
  Transmission Date: 20100525
  Serious: Yes (Hospitalization)
  Sender: FDA-Public Use
  Company Number: IT-ELI_LILLY_AND_COMPANY-IT200909004165

PATIENT
  Age: 62 Year
  Sex: Male

DRUGS (7)
  1. CIALIS [Suspect]
     Indication: DRUG USE FOR UNKNOWN INDICATION
     Dosage: 10 MG, AS NEEDED
     Route: 048
     Dates: start: 20070101, end: 20090901
  2. CIALIS [Suspect]
     Dosage: 20 MG, AS NEEDED
     Route: 048
     Dates: start: 20090910, end: 20090910
  3. NORVASC [Concomitant]
  4. ENAPREN [Concomitant]
  5. PLAVIX [Concomitant]
  6. FOLIC ACID [Concomitant]
  7. VITAMIN B-12 [Concomitant]

REACTIONS (2)
  - CEREBRAL HAEMORRHAGE [None]
  - HAEMANGIOMA [None]
